FAERS Safety Report 6674102-3 (Version None)
Quarter: 2010Q1

REPORT INFORMATION
  Report Type: 
  Country: None (occurrence: None)
  Receive Date: 20100329
  Receipt Date: 20100119
  Transmission Date: 20100710
  Serious: Yes (Other)
  Sender: FDA-Public Use
  Company Number: 2009312170

PATIENT
  Age: 27 Year
  Sex: Male
  Weight: 97.1 kg

DRUGS (9)
  1. GEODON [Suspect]
     Indication: AFFECTIVE DISORDER
     Dosage: 20 MG, 2X/DAY, ORAL
     Route: 048
     Dates: start: 20091117
  2. GEODON [Suspect]
     Indication: POST-TRAUMATIC STRESS DISORDER
     Dosage: 20 MG, 2X/DAY, ORAL
     Route: 048
     Dates: start: 20091117
  3. GEODON [Suspect]
     Indication: PSYCHOTIC BEHAVIOUR
     Dosage: 20 MG, 2X/DAY, ORAL
     Route: 048
     Dates: start: 20091117
  4. SEROQUEL [Concomitant]
  5. AMITRIPTYLINE HYDROCHLORIDE [Concomitant]
  6. EFFEXOR [Concomitant]
  7. LISINOPRIL [Concomitant]
  8. AMLODIPINE [Concomitant]
  9. ZOLOFT [Concomitant]

REACTIONS (3)
  - INCREASED APPETITE [None]
  - VISUAL ACUITY REDUCED [None]
  - WEIGHT INCREASED [None]
